FAERS Safety Report 17368455 (Version 1)
Quarter: 2020Q1

REPORT INFORMATION
  Report Type: Spontaneous
  Country: US (occurrence: US)
  Receive Date: 20200120
  Receipt Date: 20200120
  Transmission Date: 20200409
  Serious: Yes (Hospitalization)
  Sender: FDA-Public Use
  Company Number: None

PATIENT
  Age: 83 Year
  Sex: Male

DRUGS (8)
  1. ERIVEDGE [Suspect]
     Active Substance: VISMODEGIB
     Indication: BASAL CELL CARCINOMA
     Route: 048
     Dates: start: 20180125
  2. CARVEDILOL. [Concomitant]
     Active Substance: CARVEDILOL
  3. GABAPENTIN. [Concomitant]
     Active Substance: GABAPENTIN
  4. DILTIAZEM. [Concomitant]
     Active Substance: DILTIAZEM
  5. MELATONIN [Concomitant]
     Active Substance: MELATONIN
  6. TAMSULOSIN [Concomitant]
     Active Substance: TAMSULOSIN
  7. OMEPRAZOLE. [Concomitant]
     Active Substance: OMEPRAZOLE
  8. POTASSIUM [Concomitant]
     Active Substance: POTASSIUM

REACTIONS (3)
  - Sepsis [None]
  - Therapy cessation [None]
  - Muscle spasms [None]

NARRATIVE: CASE EVENT DATE: 20200108
